FAERS Safety Report 21161426 (Version 1)
Quarter: 2022Q3

REPORT INFORMATION
  Report Type: Spontaneous
  Country: US (occurrence: None)
  Receive Date: 20220801
  Receipt Date: 20220801
  Transmission Date: 20221026
  Serious: Yes (Disabling)
  Sender: FDA-Public Use
  Company Number: None

PATIENT
  Age: 25 Year
  Sex: Male
  Weight: 95.25 kg

DRUGS (8)
  1. KYLEENA [Suspect]
     Active Substance: LEVONORGESTREL
  2. DESVENLAFAXINE [Concomitant]
     Active Substance: DESVENLAFAXINE
  3. SPIRONOLACTONE [Concomitant]
     Active Substance: SPIRONOLACTONE
  4. BUSPAR [Concomitant]
     Active Substance: BUSPIRONE HYDROCHLORIDE
  5. GABAPENTIN [Concomitant]
     Active Substance: GABAPENTIN
  6. PROPRANOLOL [Concomitant]
     Active Substance: PROPRANOLOL HYDROCHLORIDE
  7. ATIVAN [Concomitant]
     Active Substance: LORAZEPAM
  8. LATUDA [Concomitant]
     Active Substance: LURASIDONE HYDROCHLORIDE

REACTIONS (16)
  - Depression [None]
  - Condition aggravated [None]
  - Crying [None]
  - Decreased interest [None]
  - Decreased appetite [None]
  - Weight decreased [None]
  - Apathy [None]
  - Anxiety [None]
  - Insomnia [None]
  - Hypersomnia [None]
  - Merycism [None]
  - Social problem [None]
  - Mood swings [None]
  - Feeling abnormal [None]
  - Fear [None]
  - Agitation [None]
